FAERS Safety Report 9487117 (Version 1)
Quarter: 2013Q3

REPORT INFORMATION
  Report Type: Spontaneous
  Country: CH (occurrence: CH)
  Receive Date: 20130829
  Receipt Date: 20130829
  Transmission Date: 20140515
  Serious: Yes (Other)
  Sender: FDA-Public Use
  Company Number: CH-TEVA-428177ISR

PATIENT
  Age: 27 Year
  Sex: Male
  Weight: 79 kg

DRUGS (30)
  1. METHOTREXAT-TEVA [Suspect]
     Indication: DIFFUSE LARGE B-CELL LYMPHOMA
     Dosage: 16700 MILLIGRAM DAILY;
     Route: 041
     Dates: start: 20130731, end: 20130731
  2. MABTHERA [Suspect]
     Indication: DIFFUSE LARGE B-CELL LYMPHOMA
     Dosage: 780 MILLIGRAM DAILY;
     Route: 041
     Dates: start: 20130730, end: 20130730
  3. BACTRIM [Concomitant]
     Route: 048
     Dates: start: 20130712
  4. PERFALGAN [Concomitant]
     Dosage: CONTINUING
     Route: 041
     Dates: start: 20130709
  5. DAFALGAN [Concomitant]
     Dosage: CONTINUING
     Route: 048
     Dates: start: 20130709
  6. DUROGESIC TTS 75 MCG/H [Concomitant]
     Dosage: 1800 MICROGRAM DAILY; ON ADMISSION: 12 MCG/H, CONTINUING
     Route: 062
  7. SPIRICORT 50 MG [Concomitant]
     Dosage: 100 MILLIGRAM DAILY;
     Route: 048
     Dates: start: 20130712, end: 20130721
  8. FORTECORTIN 4 MG [Concomitant]
     Dosage: 16 MILLIGRAM DAILY; CONTINUING
     Route: 048
     Dates: start: 20130725
  9. MOTILIUM 10 MG [Concomitant]
     Dosage: 30 MILLIGRAM DAILY; CONTINUING
     Route: 048
     Dates: start: 20130724
  10. NEXIUM 44.5 MG [Concomitant]
     Dosage: 40 MILLIGRAM DAILY; CONTINUING
     Route: 048
     Dates: start: 20130723
  11. VALTREX [Concomitant]
     Dosage: 1000 MILLIGRAM DAILY; CONTINUING
     Route: 048
     Dates: start: 20130712
  12. ZYLORIC [Concomitant]
     Dosage: 300 MILLIGRAM DAILY; CONTINUING
     Route: 048
     Dates: start: 20130712
  13. EMEND [Concomitant]
     Dosage: 1 DOSAGE FORMS DAILY;
     Route: 048
     Dates: start: 20130731, end: 20130802
  14. KYTRIL [Concomitant]
     Dosage: 2 MILLIGRAM DAILY;
     Route: 048
     Dates: start: 20130731, end: 20130731
  15. CALCIUMFOLINAT SANDOZ [Concomitant]
     Dosage: 120 MILLIGRAM DAILY;
     Route: 042
     Dates: start: 20130801, end: 20130802
  16. LEUCOVORIN [Concomitant]
     Dosage: 400 MILLIGRAM DAILY;
     Route: 042
     Dates: start: 20130802, end: 20130803
  17. FRAGMIN [Concomitant]
     Dosage: 5000 IU (INTERNATIONAL UNIT) DAILY; CONTINUING
     Route: 058
     Dates: start: 20130709
  18. NEULASTA [Concomitant]
     Dosage: 6 MILLIGRAM DAILY;
     Route: 058
     Dates: start: 20130720, end: 20130720
  19. NATRIUMBICARBONATE BRAUN [Concomitant]
     Route: 042
     Dates: start: 20130731, end: 20130803
  20. KALIUMCHLORID [Concomitant]
     Route: 042
     Dates: start: 20130731, end: 20130803
  21. LASIX 20 MG/ML [Concomitant]
     Dosage: 20 MILLIGRAM DAILY;
     Route: 042
     Dates: start: 20130731, end: 20130731
  22. ZOFRAN [Concomitant]
     Dosage: 4 MILLIGRAM DAILY;
     Route: 048
     Dates: start: 20130730, end: 20130730
  23. PASPERTIN [Concomitant]
     Dosage: 10 MILLIGRAM DAILY;
     Route: 042
     Dates: start: 20130712, end: 20130724
  24. MORPHIN HCL [Concomitant]
     Dosage: 1 DOSAGE FORMS DAILY;
     Route: 042
     Dates: start: 20130717, end: 20130731
  25. IMPORTAL [Concomitant]
     Dosage: 60 ML DAILY;
     Route: 048
     Dates: start: 20130722, end: 20130730
  26. TRANSIPEG [Concomitant]
     Route: 048
     Dates: start: 20130712, end: 20130725
  27. KALIUM HAUSMANN BRAUSETABLETTE [Concomitant]
     Dosage: 90 - 120 MMOL/D
     Route: 048
     Dates: start: 20130716, end: 20130731
  28. MG 5 GRANORAL [Concomitant]
     Dosage: 12 MILLIMOL DAILY;
     Route: 048
     Dates: start: 20130717, end: 20130718
  29. PHOSPHATSIRUP [Concomitant]
     Dosage: 30 MILLIMOL DAILY;
     Route: 048
     Dates: start: 20130716, end: 20130718
  30. FEIGENSIRUP MIT SENNA PHH [Concomitant]
     Dosage: 60 ML DAILY; CONTINUING
     Route: 065
     Dates: start: 20130730

REACTIONS (9)
  - Dry eye [Not Recovered/Not Resolved]
  - Lacrimation increased [Not Recovered/Not Resolved]
  - Vision blurred [Not Recovered/Not Resolved]
  - Nausea [Recovered/Resolved]
  - Vomiting [Recovered/Resolved]
  - Abdominal pain [Recovered/Resolved]
  - Hyperhidrosis [Recovered/Resolved]
  - Pain in extremity [Recovered/Resolved]
  - Pancytopenia [Recovered/Resolved]
